FAERS Safety Report 6668602-X (Version None)
Quarter: 2010Q2

REPORT INFORMATION
  Report Type: 
  Country: None (occurrence: None)
  Receive Date: 20100406
  Receipt Date: 20100401
  Transmission Date: 20101027
  Serious: Yes (Death)
  Sender: FDA-Public Use
  Company Number: DE-BRISTOL-MYERS SQUIBB COMPANY-15046477

PATIENT
  Age: 61 Year

DRUGS (9)
  1. CETUXIMAB [Suspect]
     Indication: PHARYNGEAL CANCER STAGE UNSPECIFIED
     Dosage: 1 DF-500 UNITS NOT SPECIFIED.
     Route: 042
     Dates: start: 20091105, end: 20091111
  2. CISPLATIN [Suspect]
     Indication: PHARYNGEAL CANCER STAGE UNSPECIFIED
     Dosage: 1 DF-50 UNITS NOT SPECIFIED.
     Route: 042
     Dates: start: 20091105, end: 20091111
  3. DOCETAXEL [Suspect]
     Indication: PHARYNGEAL CANCER STAGE UNSPECIFIED
     Dosage: 1DF-70 UNITS NOT SPECIFIED.
     Route: 042
     Dates: start: 20091105, end: 20091111
  4. PANTOPRAZOLE SODIUM [Concomitant]
     Route: 042
  5. DIFLUCAN [Concomitant]
     Route: 042
  6. CIPRO [Concomitant]
     Route: 042
  7. VERGENTAN [Concomitant]
     Route: 042
  8. DURAGESIC-100 [Concomitant]
  9. LYRICA [Concomitant]

REACTIONS (2)
  - CHRONIC OBSTRUCTIVE PULMONARY DISEASE [None]
  - INFECTION [None]
